FAERS Safety Report 8598027-1 (Version None)
Quarter: 2012Q3

REPORT INFORMATION
  Report Type: 
  Country: None (occurrence: None)
  Receive Date: 20120816
  Receipt Date: 20120814
  Transmission Date: 20120928
  Serious: Yes (Hospitalization, Other)
  Sender: FDA-Public Use
  Company Number: TR-BAYER-2011-053586

PATIENT
  Age: 32 Year
  Sex: Female
  Weight: 56 kg

DRUGS (4)
  1. BETAFERON [Suspect]
     Indication: MULTIPLE SCLEROSIS
     Dosage: UNK
     Route: 058
     Dates: start: 20090901, end: 20110101
  2. BETAFERON [Suspect]
     Dosage: UNK
     Dates: start: 20110801
  3. EFFEXOR [Concomitant]
  4. LIORESAL [Concomitant]

REACTIONS (3)
  - ABORTION SPONTANEOUS [None]
  - VAGINAL HAEMORRHAGE [None]
  - UMBILICAL CORD ABNORMALITY [None]
